FAERS Safety Report 8064463-5 (Version None)
Quarter: 2012Q1

REPORT INFORMATION
  Report Type: 
  Country: None (occurrence: None)
  Receive Date: 20120123
  Receipt Date: 20120118
  Transmission Date: 20120608
  Serious: Yes (Other)
  Sender: FDA-Public Use
  Company Number: PHHY2012JP005017

PATIENT

DRUGS (4)
  1. LAMICTAL [Concomitant]
     Route: 048
  2. CLOZARIL [Suspect]
     Dosage: 500 MG, DAILY
     Route: 048
     Dates: start: 20111201
  3. SEROQUEL [Concomitant]
     Route: 048
  4. MAGMITT [Concomitant]
     Route: 048

REACTIONS (3)
  - PARALYSIS [None]
  - CONVULSION [None]
  - MOVEMENT DISORDER [None]
